FAERS Safety Report 10057040 (Version 2)
Quarter: 2014Q2

REPORT INFORMATION
  Report Type: Report from Study
  Country: JP (occurrence: JP)
  Receive Date: 20140403
  Receipt Date: 20140403
  Transmission Date: 20141212
  Serious: Yes (Hospitalization)
  Sender: FDA-Public Use
  Company Number: JP-B.I. PHARMACEUTICALS,INC./RIDGEFIELD-2013-BI-30041NB

PATIENT
  Age: 76 Year
  Sex: Female
  Weight: 61.1 kg

DRUGS (4)
  1. PRAZAXA [Suspect]
     Indication: CEREBROVASCULAR ACCIDENT PROPHYLAXIS
     Dosage: 220 MG
     Route: 048
     Dates: start: 20130525
  2. BASSAMIN 81MG [Concomitant]
     Indication: PROPHYLAXIS
     Dosage: 81 MG
     Route: 048
  3. CETIRIZINE HYDROCHLORIDE [Concomitant]
     Dosage: 10 MG
     Route: 048
  4. SENNAL [Concomitant]
     Dosage: 12 MG
     Route: 048

REACTIONS (2)
  - Cellulitis [Recovered/Resolved]
  - Gastritis [Recovered/Resolved]
